FAERS Safety Report 10410822 (Version 2)
Quarter: 2014Q3

REPORT INFORMATION
  Report Type: Spontaneous
  Country: US (occurrence: US)
  Receive Date: 20140826
  Receipt Date: 20140826
  Transmission Date: 20150326
  Serious: No
  Sender: FDA-Public Use
  Company Number: US-BRISTOL-MYERS SQUIBB COMPANY-19247451

PATIENT
  Age: 60 Year
  Sex: Female
  Weight: 98.41 kg

DRUGS (7)
  1. XYLOCAINE [Suspect]
     Active Substance: LIDOCAINE HYDROCHLORIDE
  2. HYDROCHLOROTHIAZIDE. [Concomitant]
     Active Substance: HYDROCHLOROTHIAZIDE
  3. DOXYLAMINE [Suspect]
     Active Substance: DOXYLAMINE
  4. CYMBALTA [Concomitant]
     Active Substance: DULOXETINE HYDROCHLORIDE
  5. KENALOG [Suspect]
     Active Substance: TRIAMCINOLONE ACETONIDE
     Indication: JOINT SWELLING
     Dosage: STEROID INJECTION.
     Route: 014
     Dates: start: 20130815, end: 20130815
  6. KENALOG [Suspect]
     Active Substance: TRIAMCINOLONE ACETONIDE
     Indication: ARTHRITIS
     Dosage: STEROID INJECTION.
     Route: 014
     Dates: start: 20130815, end: 20130815
  7. LISINOPRIL. [Concomitant]
     Active Substance: LISINOPRIL

REACTIONS (6)
  - Skin lesion [Unknown]
  - Hypertension [Unknown]
  - Fatigue [Unknown]
  - Poor quality sleep [Unknown]
  - Injection site pain [Unknown]
  - Flushing [Recovered/Resolved]
